FAERS Safety Report 9027367 (Version 2)
Quarter: 2013Q1

REPORT INFORMATION
  Report Type: Spontaneous
  Country: FR (occurrence: FR)
  Receive Date: 20130123
  Receipt Date: 20130218
  Transmission Date: 20140127
  Serious: Yes (Hospitalization)
  Sender: FDA-Public Use
  Company Number: FR-009507513-1301FRA006442

PATIENT
  Age: 76 Year
  Sex: Female
  Weight: 64 kg

DRUGS (10)
  1. FOSAVANCE [Suspect]
     Indication: OSTEOPOROSIS
     Dosage: UNK
     Route: 048
     Dates: start: 20120412, end: 20120830
  2. PREVISCAN [Concomitant]
  3. APROVEL [Concomitant]
     Dosage: 300 MG, QD
     Dates: start: 2008
  4. HYPERIUM [Concomitant]
     Dosage: UNK
     Dates: start: 2008
  5. CRESTOR [Concomitant]
     Dosage: UNK
     Dates: start: 2008
  6. SOTALOL HYDROCHLORIDE [Concomitant]
     Dosage: UNK
     Dates: start: 2010
  7. CALCIT (CALCITRIOL) [Concomitant]
     Dosage: UNK
     Dates: start: 201204
  8. DEDROGYL [Concomitant]
  9. CALTRATE [Concomitant]
  10. FEMARA [Concomitant]
     Indication: BREAST CANCER
     Dosage: UNK
     Dates: start: 20120330

REACTIONS (5)
  - Atrial fibrillation [Not Recovered/Not Resolved]
  - Left ventricular failure [Not Recovered/Not Resolved]
  - Blood pressure increased [Recovered/Resolved]
  - Blood pressure increased [Recovered/Resolved]
  - Inappropriate schedule of drug administration [Unknown]
